FAERS Safety Report 13374235 (Version 2)
Quarter: 2017Q2

REPORT INFORMATION
  Report Type: Spontaneous
  Country: AU (occurrence: AU)
  Receive Date: 20170327
  Receipt Date: 20170405
  Transmission Date: 20170830
  Serious: Yes (Life-Threatening)
  Sender: FDA-Public Use
  Company Number: AU-EMD SERONO-8149889

PATIENT
  Age: 49 Year
  Sex: Female

DRUGS (1)
  1. REBIF [Suspect]
     Active Substance: INTERFERON BETA-1A
     Indication: MULTIPLE SCLEROSIS
     Dates: start: 2000, end: 201607

REACTIONS (1)
  - Renal cancer metastatic [Unknown]

NARRATIVE: CASE EVENT DATE: 201607
